FAERS Safety Report 23801890 (Version 1)
Quarter: 2024Q2

REPORT INFORMATION
  Report Type: Spontaneous
  Country: US (occurrence: US)
  Receive Date: 20240501
  Receipt Date: 20240501
  Transmission Date: 20240716
  Serious: Yes (Death, Hospitalization, Other)
  Sender: FDA-Public Use
  Company Number: US-BRISTOL-MYERS SQUIBB COMPANY-2024-063784

PATIENT
  Age: 65 Year
  Sex: Female

DRUGS (1)
  1. BELATACEPT [Suspect]
     Active Substance: BELATACEPT
     Indication: Lung transplant

REACTIONS (4)
  - Scedosporium infection [Fatal]
  - Fungal abscess central nervous system [Fatal]
  - Off label use [Unknown]
  - Pneumonia bacterial [Unknown]
